FAERS Safety Report 23482776 (Version 19)
Quarter: 2024Q4

REPORT INFORMATION
  Report Type: Spontaneous
  Country: IN (occurrence: IN)
  Receive Date: 20240205
  Receipt Date: 20241218
  Transmission Date: 20250114
  Serious: Yes (Other)
  Sender: PFIZER
  Company Number: IN-PFIZER INC-PV202400015401

PATIENT
  Age: 49 Year
  Sex: Male

DRUGS (8)
  1. LORLATINIB [Suspect]
     Active Substance: LORLATINIB
     Indication: Lung neoplasm malignant
     Dosage: 100 MG
     Route: 048
     Dates: start: 20240125
  2. LORLATINIB [Suspect]
     Active Substance: LORLATINIB
     Dosage: 100 MG, 1X/DAY
     Route: 048
     Dates: start: 20240126
  3. LORLATINIB [Suspect]
     Active Substance: LORLATINIB
     Dosage: UNK
     Dates: start: 20240410
  4. LORLATINIB [Suspect]
     Active Substance: LORLATINIB
     Dosage: 100 MG, 1X/DAY
     Route: 048
  5. DEXAMETHASONE [Concomitant]
     Active Substance: DEXAMETHASONE
     Dosage: UNK
  6. PANTOPRAZOLE [Concomitant]
     Active Substance: PANTOPRAZOLE
     Dosage: UNK
  7. LEVETIRACETAM [Concomitant]
     Active Substance: LEVETIRACETAM
     Dosage: UNK
  8. EPTOIN [Concomitant]
     Active Substance: PHENYTOIN SODIUM
     Dosage: 100 MG, 3X/DAY

REACTIONS (64)
  - Hydrocele male infected [Unknown]
  - Hydrocele [Recovered/Resolved]
  - Diabetes mellitus [Unknown]
  - Asthenia [Recovering/Resolving]
  - Gait inability [Unknown]
  - Balance disorder [Recovering/Resolving]
  - Speech disorder [Recovered/Resolved]
  - Memory impairment [Unknown]
  - Constipation [Unknown]
  - Cerebral disorder [Unknown]
  - Depression [Unknown]
  - Flatulence [Unknown]
  - Abdominal distension [Unknown]
  - Dyspepsia [Unknown]
  - Weight fluctuation [Unknown]
  - Pain [Recovered/Resolved]
  - Anxiety [Unknown]
  - Stress [Unknown]
  - Tension [Unknown]
  - Performance status decreased [Unknown]
  - Dyspnoea exertional [Unknown]
  - Cough [Recovering/Resolving]
  - Nasopharyngitis [Recovered/Resolved]
  - Headache [Unknown]
  - Throat tightness [Unknown]
  - Insomnia [Recovering/Resolving]
  - Pain in extremity [Unknown]
  - Arthralgia [Unknown]
  - Oral pain [Unknown]
  - Muscle tightness [Unknown]
  - Chills [Unknown]
  - Dyspnoea [Recovering/Resolving]
  - Repetitive speech [Unknown]
  - Visual impairment [Unknown]
  - Back pain [Unknown]
  - Feeling abnormal [Unknown]
  - Loss of personal independence in daily activities [Unknown]
  - Decreased interest [Unknown]
  - Tinnitus [Unknown]
  - Heart rate increased [Unknown]
  - Language disorder [Unknown]
  - Generalised oedema [Recovering/Resolving]
  - Laboratory test abnormal [Unknown]
  - Movement disorder [Recovered/Resolved]
  - Cold-stimulus headache [Unknown]
  - Groin infection [Unknown]
  - Paraesthesia [Unknown]
  - Muscle twitching [Unknown]
  - Sitting disability [Unknown]
  - Chills [Unknown]
  - Joint stiffness [Unknown]
  - Pruritus [Unknown]
  - Skin discolouration [Recovering/Resolving]
  - Blood cholesterol increased [Unknown]
  - Blood triglycerides increased [Unknown]
  - Low density lipoprotein increased [Unknown]
  - Blood glucose increased [Unknown]
  - Sensory loss [Unknown]
  - Cyst rupture [Unknown]
  - Lipids abnormal [Unknown]
  - Body temperature decreased [Unknown]
  - Peripheral vascular disorder [Unknown]
  - Glycosylated haemoglobin increased [Unknown]
  - Neoplasm progression [Unknown]

NARRATIVE: CASE EVENT DATE: 20240101
